FAERS Safety Report 17933926 (Version 14)
Quarter: 2022Q1

REPORT INFORMATION
  Report Type: Spontaneous
  Country: GB (occurrence: GB)
  Receive Date: 20200623
  Receipt Date: 20220214
  Transmission Date: 20220423
  Serious: Yes (Other)
  Sender: FDA-Public Use
  Company Number: GB-AVENTIS-200710014EU

PATIENT
  Age: 54 Year
  Sex: Male

DRUGS (302)
  1. LORAZEPAM [Suspect]
     Active Substance: LORAZEPAM
     Indication: Pneumonia
     Dosage: 1-2MG ONCE ONLY
     Route: 065
  2. LORAZEPAM [Suspect]
     Active Substance: LORAZEPAM
     Indication: Ill-defined disorder
     Dosage: 1-2MG ONCE ONLY
     Route: 065
     Dates: start: 2006
  3. LORAZEPAM [Suspect]
     Active Substance: LORAZEPAM
     Route: 065
  4. LORAZEPAM [Suspect]
     Active Substance: LORAZEPAM
     Route: 065
  5. LORAZEPAM [Suspect]
     Active Substance: LORAZEPAM
     Dosage: 1.2 MG, TOTAL ; IN TOTAL
     Route: 065
  6. HYDROCORTISONE SODIUM SUCCINATE [Suspect]
     Active Substance: HYDROCORTISONE SODIUM SUCCINATE
     Indication: Ill-defined disorder
     Route: 065
  7. HYDROCORTISONE SODIUM SUCCINATE [Suspect]
     Active Substance: HYDROCORTISONE SODIUM SUCCINATE
     Indication: Pneumonia
     Route: 042
  8. HYDROCORTISONE SODIUM SUCCINATE [Suspect]
     Active Substance: HYDROCORTISONE SODIUM SUCCINATE
     Route: 065
  9. HYDROCORTISONE SODIUM SUCCINATE [Suspect]
     Active Substance: HYDROCORTISONE SODIUM SUCCINATE
     Route: 042
  10. HYDROCORTISONE SODIUM SUCCINATE [Suspect]
     Active Substance: HYDROCORTISONE SODIUM SUCCINATE
     Dosage: (FREQUENCY OF PRODUCT : 1S)
     Route: 065
  11. HYDROCORTISONE SODIUM SUCCINATE [Suspect]
     Active Substance: HYDROCORTISONE SODIUM SUCCINATE
     Route: 042
  12. HYDROCORTISONE SODIUM SUCCINATE [Suspect]
     Active Substance: HYDROCORTISONE SODIUM SUCCINATE
     Dosage: 100 MG, TOTAL
     Route: 042
     Dates: start: 2006
  13. HYDROCORTISONE SODIUM SUCCINATE [Suspect]
     Active Substance: HYDROCORTISONE SODIUM SUCCINATE
     Route: 042
  14. ALBUTEROL SULFATE [Suspect]
     Active Substance: ALBUTEROL SULFATE
     Indication: Ill-defined disorder
     Dosage: PRN (AS REQUIRED)
     Route: 065
     Dates: start: 2006
  15. ALBUTEROL SULFATE [Suspect]
     Active Substance: ALBUTEROL SULFATE
     Indication: Pneumonia
     Route: 065
     Dates: start: 2006
  16. ALBUTEROL SULFATE [Suspect]
     Active Substance: ALBUTEROL SULFATE
     Dosage: AS NECESSARY
     Route: 065
  17. ALBUTEROL SULFATE [Suspect]
     Active Substance: ALBUTEROL SULFATE
     Dosage: PRN (AS NECESAARY)
     Route: 065
  18. ALBUTEROL SULFATE [Suspect]
     Active Substance: ALBUTEROL SULFATE
     Dosage: PRN (AS NECESSARY)
     Route: 065
  19. SODIUM CHLORIDE [Suspect]
     Active Substance: SODIUM CHLORIDE
     Indication: Ill-defined disorder
     Dosage: DOSE AS USED: 0.9 PERCENT SOLUTION
     Route: 042
  20. SODIUM CHLORIDE [Suspect]
     Active Substance: SODIUM CHLORIDE
     Indication: Pneumonia
     Dosage: 0.9 PERCENT SOLUTION
     Route: 042
     Dates: start: 2006
  21. SODIUM CHLORIDE [Suspect]
     Active Substance: SODIUM CHLORIDE
     Dosage: 0.9 PERCENT SOLUTION
     Route: 042
  22. SODIUM CHLORIDE [Suspect]
     Active Substance: SODIUM CHLORIDE
     Route: 042
  23. SODIUM CHLORIDE [Suspect]
     Active Substance: SODIUM CHLORIDE
     Dosage: 0.9 PERCENT SOLUTION
     Route: 042
     Dates: start: 2006
  24. MAGNESIUM SULFATE [Suspect]
     Active Substance: MAGNESIUM SULFATE
     Indication: Ill-defined disorder
     Dosage: 10ML/50 PERCENT 8MMOLS/50MLS
     Route: 065
  25. MAGNESIUM SULFATE [Suspect]
     Active Substance: MAGNESIUM SULFATE
     Indication: Pneumonia
     Dosage: 10ML/50 PERCENT 8MMOLS/50MLS
     Route: 065
     Dates: start: 2006
  26. MAGNESIUM SULFATE [Suspect]
     Active Substance: MAGNESIUM SULFATE
     Route: 065
  27. PHYTONADIONE [Suspect]
     Active Substance: PHYTONADIONE
     Indication: Pneumonia
     Route: 065
     Dates: start: 2006
  28. PHYTONADIONE [Suspect]
     Active Substance: PHYTONADIONE
     Indication: Ill-defined disorder
     Route: 065
  29. POTASSIUM CHLORIDE [Suspect]
     Active Substance: POTASSIUM CHLORIDE
     Indication: Ill-defined disorder
     Dosage: QD (40MMOLS/100ML INFUSION)
     Route: 065
     Dates: start: 2006
  30. POTASSIUM CHLORIDE [Suspect]
     Active Substance: POTASSIUM CHLORIDE
     Indication: Pneumonia
     Dosage: 2 DF, TID
     Route: 061
  31. POTASSIUM CHLORIDE [Suspect]
     Active Substance: POTASSIUM CHLORIDE
     Dosage: 2 DF, QD
     Route: 065
  32. POTASSIUM CHLORIDE [Suspect]
     Active Substance: POTASSIUM CHLORIDE
     Dosage: 2 DF, Q8H
     Route: 065
  33. POTASSIUM CHLORIDE [Suspect]
     Active Substance: POTASSIUM CHLORIDE
     Dosage: TID, 40MMOLS/100ML INFUSION
     Route: 065
     Dates: start: 2006
  34. POTASSIUM CHLORIDE [Suspect]
     Active Substance: POTASSIUM CHLORIDE
     Dosage: 2 DF, TID
     Route: 061
     Dates: start: 2006
  35. POTASSIUM CHLORIDE [Suspect]
     Active Substance: POTASSIUM CHLORIDE
     Dosage: TID
     Route: 065
  36. POTASSIUM CHLORIDE [Suspect]
     Active Substance: POTASSIUM CHLORIDE
     Dosage: TID
     Route: 065
  37. POTASSIUM CHLORIDE [Suspect]
     Active Substance: POTASSIUM CHLORIDE
     Dosage: TID (0.33 DAY)
     Route: 065
  38. POTASSIUM CHLORIDE [Suspect]
     Active Substance: POTASSIUM CHLORIDE
     Dosage: 40MMOLS/100ML INFUSION
     Route: 065
     Dates: start: 2006
  39. POTASSIUM CHLORIDE [Suspect]
     Active Substance: POTASSIUM CHLORIDE
     Dosage: 40MMOLS/100ML INFUSION
     Route: 065
  40. POTASSIUM CHLORIDE [Suspect]
     Active Substance: POTASSIUM CHLORIDE
     Route: 065
  41. TRICLOSAN [Suspect]
     Active Substance: TRICLOSAN
     Indication: Ill-defined disorder
     Route: 065
     Dates: start: 2006
  42. TRICLOSAN [Suspect]
     Active Substance: TRICLOSAN
     Route: 065
     Dates: start: 2006
  43. TRICLOSAN [Suspect]
     Active Substance: TRICLOSAN
     Route: 065
  44. TRICLOSAN [Suspect]
     Active Substance: TRICLOSAN
     Route: 065
  45. ENOXAPARIN SODIUM [Suspect]
     Active Substance: ENOXAPARIN SODIUM
     Indication: Ill-defined disorder
     Dosage: 20 MILLIGRAM, QD
     Route: 058
  46. ENOXAPARIN SODIUM [Suspect]
     Active Substance: ENOXAPARIN SODIUM
     Indication: Pneumonia
     Dosage: 20 MILLIGRAM, QD
     Route: 058
  47. ENOXAPARIN SODIUM [Suspect]
     Active Substance: ENOXAPARIN SODIUM
     Dosage: 20 MILLIGRAM, QD
     Route: 058
     Dates: start: 2006
  48. ENOXAPARIN SODIUM [Suspect]
     Active Substance: ENOXAPARIN SODIUM
     Dosage: 20 MILLIGRAM, QD
     Route: 065
  49. ENOXAPARIN SODIUM [Suspect]
     Active Substance: ENOXAPARIN SODIUM
     Route: 065
  50. ENOXAPARIN SODIUM [Suspect]
     Active Substance: ENOXAPARIN SODIUM
     Dosage: 20 MILLIGRAM, QD
     Route: 048
  51. PROPOFOL [Suspect]
     Active Substance: PROPOFOL
     Indication: Ill-defined disorder
     Route: 042
  52. PROPOFOL [Suspect]
     Active Substance: PROPOFOL
     Indication: Pneumonia
     Route: 065
     Dates: start: 2006
  53. PROPOFOL [Suspect]
     Active Substance: PROPOFOL
     Route: 065
  54. PROPOFOL [Suspect]
     Active Substance: PROPOFOL
     Route: 042
  55. HEPARIN SODIUM [Suspect]
     Active Substance: HEPARIN SODIUM
     Indication: Ill-defined disorder
     Route: 065
  56. HEPARIN SODIUM [Suspect]
     Active Substance: HEPARIN SODIUM
     Indication: Product used for unknown indication
     Route: 065
  57. INSULIN HUMAN NOS [Suspect]
     Active Substance: INSULIN HUMAN
     Indication: Toxic epidermal necrolysis
     Route: 065
  58. INSULIN HUMAN NOS [Suspect]
     Active Substance: INSULIN HUMAN
     Indication: Pneumonia
     Dosage: 50 UNITS/50ML
     Route: 042
  59. INSULIN HUMAN NOS [Suspect]
     Active Substance: INSULIN HUMAN
     Dosage: 50 UNITS/50ML
     Route: 042
     Dates: start: 2006
  60. INSULIN HUMAN NOS [Suspect]
     Active Substance: INSULIN HUMAN
     Route: 042
     Dates: start: 2006
  61. INSULIN HUMAN NOS [Suspect]
     Active Substance: INSULIN HUMAN
     Route: 065
  62. INSULIN HUMAN NOS [Suspect]
     Active Substance: INSULIN HUMAN
     Route: 065
  63. INSULIN HUMAN NOS [Suspect]
     Active Substance: INSULIN HUMAN
     Route: 042
  64. POTASSIUM PHOSPHATE, DIBASIC [Suspect]
     Active Substance: POTASSIUM PHOSPHATE, DIBASIC
     Indication: Ill-defined disorder
     Route: 065
     Dates: start: 2006
  65. POTASSIUM PHOSPHATE, DIBASIC [Suspect]
     Active Substance: POTASSIUM PHOSPHATE, DIBASIC
     Route: 065
  66. SIMVASTATIN [Suspect]
     Active Substance: SIMVASTATIN
     Indication: Pneumonia
     Route: 042
  67. SIMVASTATIN [Suspect]
     Active Substance: SIMVASTATIN
     Indication: Ill-defined disorder
     Dosage: 40 MILLIGRAM, QD
     Route: 065
  68. SIMVASTATIN [Suspect]
     Active Substance: SIMVASTATIN
     Dosage: 40 MILLIGRAM, QD
     Route: 042
     Dates: start: 2006
  69. SIMVASTATIN [Suspect]
     Active Substance: SIMVASTATIN
     Dosage: 40 MILLIGRAM, QD
     Route: 042
     Dates: start: 2006
  70. SIMVASTATIN [Suspect]
     Active Substance: SIMVASTATIN
     Dosage: 40 MILLIGRAM, QD
     Route: 042
  71. SIMVASTATIN [Suspect]
     Active Substance: SIMVASTATIN
     Route: 042
     Dates: start: 2006
  72. SIMVASTATIN [Suspect]
     Active Substance: SIMVASTATIN
     Route: 042
     Dates: start: 2006
  73. SULFADIAZINE [Suspect]
     Active Substance: SULFADIAZINE
     Indication: Ill-defined disorder
     Route: 061
  74. SULFADIAZINE [Suspect]
     Active Substance: SULFADIAZINE
     Indication: Pneumonia
     Route: 061
  75. SULFADIAZINE [Suspect]
     Active Substance: SULFADIAZINE
     Route: 065
  76. CALCIUM CHLORIDE [Suspect]
     Active Substance: CALCIUM CHLORIDE
     Indication: Ill-defined disorder
     Route: 065
  77. CALCIUM CHLORIDE [Suspect]
     Active Substance: CALCIUM CHLORIDE
     Indication: Pneumonia
     Route: 065
     Dates: start: 2006
  78. CALCIUM CHLORIDE [Suspect]
     Active Substance: CALCIUM CHLORIDE
     Route: 042
  79. TINZAPARIN [Suspect]
     Active Substance: TINZAPARIN
     Indication: Ill-defined disorder
     Dosage: 3500 UL, QD
     Route: 065
  80. TINZAPARIN [Suspect]
     Active Substance: TINZAPARIN
     Indication: Pneumonia
     Dosage: 3500 UG, QD
     Route: 065
     Dates: start: 2006
  81. TINZAPARIN [Suspect]
     Active Substance: TINZAPARIN
     Dosage: 3500 UL, QD
     Route: 065
     Dates: start: 2006
  82. TINZAPARIN [Suspect]
     Active Substance: TINZAPARIN
     Dosage: 3500 UL, QD
     Route: 065
     Dates: start: 2006
  83. TINZAPARIN [Suspect]
     Active Substance: TINZAPARIN
     Route: 065
  84. BACTROBAN [Suspect]
     Active Substance: MUPIROCIN\MUPIROCIN CALCIUM
     Indication: Ill-defined disorder
     Route: 065
     Dates: start: 2006
  85. BACTROBAN [Suspect]
     Active Substance: MUPIROCIN\MUPIROCIN CALCIUM
     Route: 065
  86. CEFTRIAXONE SODIUM [Suspect]
     Active Substance: CEFTRIAXONE SODIUM
     Indication: Ill-defined disorder
     Route: 042
     Dates: start: 2006
  87. CEFTRIAXONE SODIUM [Suspect]
     Active Substance: CEFTRIAXONE SODIUM
     Indication: Pneumonia
     Route: 042
     Dates: start: 2006
  88. CEFTRIAXONE SODIUM [Suspect]
     Active Substance: CEFTRIAXONE SODIUM
     Route: 065
  89. OMEPRAZOLE [Suspect]
     Active Substance: OMEPRAZOLE
     Indication: Ill-defined disorder
     Dosage: 40 MILLIGRAM
     Route: 042
     Dates: start: 2006
  90. OMEPRAZOLE [Suspect]
     Active Substance: OMEPRAZOLE
     Indication: Pneumonia
     Dosage: 40 MILLIGRAM
     Route: 042
  91. OMEPRAZOLE [Suspect]
     Active Substance: OMEPRAZOLE
     Dosage: 40 MILLIGRAM
     Route: 042
  92. OMEPRAZOLE [Suspect]
     Active Substance: OMEPRAZOLE
     Route: 042
  93. OMEPRAZOLE [Suspect]
     Active Substance: OMEPRAZOLE
     Route: 065
  94. OMEPRAZOLE [Suspect]
     Active Substance: OMEPRAZOLE
     Route: 065
  95. NOREPINEPHRINE [Suspect]
     Active Substance: NOREPINEPHRINE
     Indication: Ill-defined disorder
     Route: 065
     Dates: start: 2006
  96. NOREPINEPHRINE [Suspect]
     Active Substance: NOREPINEPHRINE
     Indication: Pneumonia
     Route: 065
  97. NOREPINEPHRINE [Suspect]
     Active Substance: NOREPINEPHRINE
     Route: 065
  98. NOREPINEPHRINE [Suspect]
     Active Substance: NOREPINEPHRINE
     Route: 065
     Dates: start: 2006
  99. NOREPINEPHRINE [Suspect]
     Active Substance: NOREPINEPHRINE
     Route: 065
     Dates: start: 2006
  100. THIAMINE HYDROCHLORIDE [Suspect]
     Active Substance: THIAMINE HYDROCHLORIDE
     Indication: Ill-defined disorder
     Dosage: 100 MG, QD
     Route: 048
  101. THIAMINE HYDROCHLORIDE [Suspect]
     Active Substance: THIAMINE HYDROCHLORIDE
     Indication: Pneumonia
     Dosage: 100 MILLIGRAM, QD
     Route: 048
  102. THIAMINE HYDROCHLORIDE [Suspect]
     Active Substance: THIAMINE HYDROCHLORIDE
     Dosage: 100 MG, QD
     Route: 048
     Dates: start: 2006
  103. THIAMINE HYDROCHLORIDE [Suspect]
     Active Substance: THIAMINE HYDROCHLORIDE
     Dosage: 100 MILLIGRAM, QD
     Route: 048
  104. THIAMINE HYDROCHLORIDE [Suspect]
     Active Substance: THIAMINE HYDROCHLORIDE
     Route: 065
  105. THIAMINE HYDROCHLORIDE [Suspect]
     Active Substance: THIAMINE HYDROCHLORIDE
     Route: 048
  106. FUROSEMIDE [Suspect]
     Active Substance: FUROSEMIDE
     Indication: Ill-defined disorder
     Dosage: BID
     Route: 042
  107. FUROSEMIDE [Suspect]
     Active Substance: FUROSEMIDE
     Route: 048
     Dates: start: 2006
  108. FUROSEMIDE [Suspect]
     Active Substance: FUROSEMIDE
     Route: 042
  109. FUROSEMIDE [Suspect]
     Active Substance: FUROSEMIDE
     Route: 048
     Dates: start: 2006
  110. FUROSEMIDE [Suspect]
     Active Substance: FUROSEMIDE
     Route: 042
     Dates: start: 2006
  111. FUROSEMIDE [Suspect]
     Active Substance: FUROSEMIDE
     Route: 042
  112. FUROSEMIDE [Suspect]
     Active Substance: FUROSEMIDE
     Route: 065
  113. FLUCONAZOLE [Suspect]
     Active Substance: FLUCONAZOLE
     Indication: Ill-defined disorder
     Dosage: 200 MILLIGRAM, QD
     Route: 042
     Dates: start: 2006
  114. FLUCONAZOLE [Suspect]
     Active Substance: FLUCONAZOLE
     Indication: Pneumonia
     Dosage: 200 MILLIGRAM, QD
     Route: 042
  115. FLUCONAZOLE [Suspect]
     Active Substance: FLUCONAZOLE
     Route: 065
  116. DOBUTAMINE [Suspect]
     Active Substance: DOBUTAMINE HYDROCHLORIDE
     Indication: Pneumonia
     Route: 065
     Dates: start: 2006
  117. DOBUTAMINE [Suspect]
     Active Substance: DOBUTAMINE HYDROCHLORIDE
     Indication: Ill-defined disorder
     Route: 065
  118. SODIUM BICARBONATE [Suspect]
     Active Substance: SODIUM BICARBONATE
     Indication: Ill-defined disorder
     Dosage: 100 MILLIGRAM (ADMINISTRATION OVER AN HOUR)
     Route: 042
  119. SODIUM BICARBONATE [Suspect]
     Active Substance: SODIUM BICARBONATE
     Indication: Pneumonia
     Dosage: 100 MILLIGRAM (ADMINISTRATION OVER AN HOUR)
     Route: 042
     Dates: start: 2006
  120. SODIUM BICARBONATE [Suspect]
     Active Substance: SODIUM BICARBONATE
     Dosage: 100 MG, QOW
     Route: 042
     Dates: start: 2006
  121. LANSOPRAZOLE [Suspect]
     Active Substance: LANSOPRAZOLE
     Indication: Ill-defined disorder
     Dosage: 30 MILLIGRAM
     Route: 065
  122. LANSOPRAZOLE [Suspect]
     Active Substance: LANSOPRAZOLE
     Indication: Pneumonia
     Route: 065
     Dates: start: 2006
  123. LANSOPRAZOLE [Suspect]
     Active Substance: LANSOPRAZOLE
     Dosage: 30 MILLIGRAM
     Route: 065
  124. LANSOPRAZOLE [Suspect]
     Active Substance: LANSOPRAZOLE
     Route: 065
  125. LANSOPRAZOLE [Suspect]
     Active Substance: LANSOPRAZOLE
     Route: 065
  126. LANSOPRAZOLE [Suspect]
     Active Substance: LANSOPRAZOLE
     Dosage: 1 G,TID (DAILY DOSE: 3 GRAM(S), 1 G, TID), (0.33 DAY)
     Route: 042
  127. FRAGMIN [Suspect]
     Active Substance: DALTEPARIN SODIUM
     Indication: Ill-defined disorder
     Route: 058
  128. FRAGMIN [Suspect]
     Active Substance: DALTEPARIN SODIUM
     Indication: Pneumonia
     Route: 058
     Dates: start: 2006
  129. FRAGMIN [Suspect]
     Active Substance: DALTEPARIN SODIUM
     Route: 058
  130. FRAGMIN [Suspect]
     Active Substance: DALTEPARIN SODIUM
     Dosage: 2500 IU, QD
     Route: 058
     Dates: start: 2006
  131. FRAGMIN [Suspect]
     Active Substance: DALTEPARIN SODIUM
     Dosage: 2500 IU, QD
     Route: 058
  132. FRAGMIN [Suspect]
     Active Substance: DALTEPARIN SODIUM
     Dosage: 2500 IU, QD
     Route: 058
  133. FRAGMIN [Suspect]
     Active Substance: DALTEPARIN SODIUM
     Dosage: 2500 IU, QD
     Route: 058
  134. LACTULOSE [Suspect]
     Active Substance: LACTULOSE
     Indication: Ill-defined disorder
     Dosage: 10 MILLILITER
     Route: 065
  135. LACTULOSE [Suspect]
     Active Substance: LACTULOSE
     Indication: Pneumonia
     Dosage: 10 MILLILITER
     Route: 065
     Dates: start: 2006
  136. LACTULOSE [Suspect]
     Active Substance: LACTULOSE
     Route: 065
  137. LACTULOSE [Suspect]
     Active Substance: LACTULOSE
     Route: 065
  138. CHLORPHENIRAMINE MALEATE [Suspect]
     Active Substance: CHLORPHENIRAMINE MALEATE
     Indication: Ill-defined disorder
     Dosage: 10 MILLIGRAM, QID
     Route: 042
  139. CHLORPHENIRAMINE MALEATE [Suspect]
     Active Substance: CHLORPHENIRAMINE MALEATE
     Dosage: 10 MILLIGRAM
     Route: 042
  140. CHLORPHENIRAMINE MALEATE [Suspect]
     Active Substance: CHLORPHENIRAMINE MALEATE
     Dosage: 10 MILLIGRAM, QID
     Route: 042
     Dates: start: 2006
  141. ALFENTANIL [Suspect]
     Active Substance: ALFENTANIL
     Indication: Pneumonia
     Route: 042
  142. ALFENTANIL [Suspect]
     Active Substance: ALFENTANIL
     Indication: Ill-defined disorder
     Route: 065
  143. ALFENTANIL [Suspect]
     Active Substance: ALFENTANIL
     Route: 042
  144. ALFENTANIL [Suspect]
     Active Substance: ALFENTANIL
     Route: 061
  145. ALFENTANIL [Suspect]
     Active Substance: ALFENTANIL
     Route: 042
  146. ALFENTANIL [Suspect]
     Active Substance: ALFENTANIL
     Route: 065
  147. ALFENTANIL [Suspect]
     Active Substance: ALFENTANIL
     Route: 042
     Dates: start: 2006
  148. CALCIUM GLUCONATE [Suspect]
     Active Substance: CALCIUM GLUCONATE
     Indication: Ill-defined disorder
     Dosage: 10 MILLILITER
     Route: 042
  149. CALCIUM GLUCONATE [Suspect]
     Active Substance: CALCIUM GLUCONATE
     Indication: Pneumonia
     Dosage: 10 MILLILITER
     Route: 042
     Dates: start: 2006
  150. CALCIUM GLUCONATE [Suspect]
     Active Substance: CALCIUM GLUCONATE
     Route: 042
  151. CALCIUM GLUCONATE [Suspect]
     Active Substance: CALCIUM GLUCONATE
     Dosage: 10 MILLILITER
     Route: 042
  152. CALCIUM GLUCONATE [Suspect]
     Active Substance: CALCIUM GLUCONATE
     Route: 065
  153. ACETAMINOPHEN [Suspect]
     Active Substance: ACETAMINOPHEN
     Indication: Ill-defined disorder
     Route: 065
  154. ACETAMINOPHEN [Suspect]
     Active Substance: ACETAMINOPHEN
     Indication: Pneumonia
     Route: 065
     Dates: start: 2006
  155. ACETAMINOPHEN [Suspect]
     Active Substance: ACETAMINOPHEN
     Route: 065
     Dates: start: 2006
  156. ACETAMINOPHEN [Suspect]
     Active Substance: ACETAMINOPHEN
     Dosage: 50 UNITS/50 ML
     Route: 042
     Dates: start: 2006
  157. ACETAMINOPHEN [Suspect]
     Active Substance: ACETAMINOPHEN
     Route: 042
  158. AMOXICILLIN [Suspect]
     Active Substance: AMOXICILLIN
     Indication: Ill-defined disorder
     Route: 042
  159. AMOXICILLIN [Suspect]
     Active Substance: AMOXICILLIN
     Route: 065
  160. AMOXICILLIN [Suspect]
     Active Substance: AMOXICILLIN
     Route: 042
     Dates: start: 20060913
  161. AMOXICILLIN [Suspect]
     Active Substance: AMOXICILLIN
     Dosage: 1 GRAM TID
     Route: 065
     Dates: start: 20060913
  162. AMOXICILLIN [Suspect]
     Active Substance: AMOXICILLIN
     Dosage: 1 G,TID (DAILY DOSE: 3 GRAM(S), 1 G, TID), (0.33 DAY)
     Route: 042
  163. AMOXICILLIN [Suspect]
     Active Substance: AMOXICILLIN
     Dosage: 250 MG, TID (750 MG)
     Route: 048
     Dates: start: 20060913
  164. POTASSIUM BICARBONATE\POTASSIUM CHLORIDE [Suspect]
     Active Substance: POTASSIUM BICARBONATE\POTASSIUM CHLORIDE
     Indication: Ill-defined disorder
     Route: 065
  165. POTASSIUM BICARBONATE\POTASSIUM CHLORIDE [Suspect]
     Active Substance: POTASSIUM BICARBONATE\POTASSIUM CHLORIDE
     Indication: Product used for unknown indication
     Route: 061
  166. VITAMIN K [Suspect]
     Active Substance: PHYTONADIONE
     Indication: Pneumonia
     Route: 065
  167. VITAMIN K [Suspect]
     Active Substance: PHYTONADIONE
     Indication: Ill-defined disorder
     Route: 065
     Dates: start: 2006
  168. CHLORPHENIRAMINE MALEATE [Suspect]
     Active Substance: CHLORPHENIRAMINE MALEATE
     Indication: Ill-defined disorder
     Route: 042
  169. CHLORPHENIRAMINE MALEATE [Suspect]
     Active Substance: CHLORPHENIRAMINE MALEATE
     Indication: Toxic epidermal necrolysis
     Dosage: 10 MG,QID (DAILY DOSE: 40 MILLIGRAM(S), 10 MG, QID)
     Route: 042
  170. CHLORPHENIRAMINE MALEATE [Suspect]
     Active Substance: CHLORPHENIRAMINE MALEATE
     Indication: Pneumonia
     Dosage: 10 MG,QID (DAILY DOSE: 40 MILLIGRAM(S), 10 MG, QID)
     Route: 042
     Dates: start: 2006
  171. CHLORPHENIRAMINE MALEATE [Suspect]
     Active Substance: CHLORPHENIRAMINE MALEATE
     Route: 042
     Dates: start: 2006
  172. SILVER SULFADIAZINE [Suspect]
     Active Substance: SILVER SULFADIAZINE
     Indication: Ill-defined disorder
     Route: 061
     Dates: start: 2006
  173. SILVER SULFADIAZINE [Suspect]
     Active Substance: SILVER SULFADIAZINE
     Route: 061
     Dates: start: 2006
  174. SILVER SULFADIAZINE [Suspect]
     Active Substance: SILVER SULFADIAZINE
     Route: 061
  175. SILVER SULFADIAZINE [Suspect]
     Active Substance: SILVER SULFADIAZINE
     Route: 065
  176. SILVER SULFADIAZINE [Suspect]
     Active Substance: SILVER SULFADIAZINE
     Route: 042
  177. CANRENOATE POTASSIUM [Suspect]
     Active Substance: CANRENOATE POTASSIUM
     Indication: Ill-defined disorder
     Route: 065
  178. VITAMIN B [Suspect]
     Active Substance: VITAMIN B
     Indication: Ill-defined disorder
     Route: 065
  179. VITAMIN B [Suspect]
     Active Substance: VITAMIN B
     Dosage: 50 UNITS/50ML
     Route: 042
  180. SILVER SULFADIAZINE [Suspect]
     Active Substance: SILVER SULFADIAZINE
     Indication: Ill-defined disorder
     Route: 065
  181. SILVER SULFADIAZINE [Suspect]
     Active Substance: SILVER SULFADIAZINE
     Route: 065
  182. HEPARIN CALCIUM [Suspect]
     Active Substance: HEPARIN CALCIUM
     Indication: Ill-defined disorder
     Route: 065
  183. ANHYDROUS CITRIC ACID [Suspect]
     Active Substance: ANHYDROUS CITRIC ACID
     Indication: Pneumonia
     Route: 065
  184. ANHYDROUS CITRIC ACID [Suspect]
     Active Substance: ANHYDROUS CITRIC ACID
     Indication: Ill-defined disorder
     Route: 065
  185. ANHYDROUS CITRIC ACID [Suspect]
     Active Substance: ANHYDROUS CITRIC ACID
     Route: 048
     Dates: start: 2006
  186. ANHYDROUS CITRIC ACID [Suspect]
     Active Substance: ANHYDROUS CITRIC ACID
     Dosage: 50 UNITS/50ML
     Route: 042
  187. ANHYDROUS CITRIC ACID [Suspect]
     Active Substance: ANHYDROUS CITRIC ACID
     Route: 048
  188. CHLORPHENIRAMINE MALEATE [Suspect]
     Active Substance: CHLORPHENIRAMINE MALEATE
     Indication: Ill-defined disorder
     Route: 065
     Dates: start: 2006
  189. CHLORPHENIRAMINE MALEATE [Suspect]
     Active Substance: CHLORPHENIRAMINE MALEATE
     Route: 065
     Dates: start: 2006
  190. CHLORPHENIRAMINE MALEATE [Suspect]
     Active Substance: CHLORPHENIRAMINE MALEATE
     Route: 065
     Dates: start: 2006
  191. SILVER SULFADIAZINE [Suspect]
     Active Substance: SILVER SULFADIAZINE
     Indication: Ill-defined disorder
     Route: 042
  192. SILVER SULFADIAZINE [Suspect]
     Active Substance: SILVER SULFADIAZINE
     Route: 042
     Dates: start: 2006
  193. SILVER SULFADIAZINE [Suspect]
     Active Substance: SILVER SULFADIAZINE
     Route: 061
  194. BACTROBAN [Suspect]
     Active Substance: MUPIROCIN\MUPIROCIN CALCIUM
     Indication: Ill-defined disorder
     Route: 065
  195. BACTROBAN [Suspect]
     Active Substance: MUPIROCIN\MUPIROCIN CALCIUM
     Route: 065
     Dates: start: 2006
  196. TRICLOSAN [Suspect]
     Active Substance: TRICLOSAN
     Indication: Ill-defined disorder
     Route: 065
     Dates: start: 2006
  197. TRICLOSAN [Suspect]
     Active Substance: TRICLOSAN
     Route: 065
     Dates: start: 2006
  198. TRICLOSAN [Suspect]
     Active Substance: TRICLOSAN
     Route: 065
  199. TRICLOSAN [Suspect]
     Active Substance: TRICLOSAN
     Route: 065
     Dates: start: 2006
  200. LANSOPRAZOLE [Suspect]
     Active Substance: LANSOPRAZOLE
     Indication: Pneumonia
     Route: 065
  201. LANSOPRAZOLE [Suspect]
     Active Substance: LANSOPRAZOLE
     Indication: Ill-defined disorder
     Route: 065
  202. LANSOPRAZOLE [Suspect]
     Active Substance: LANSOPRAZOLE
     Route: 065
  203. LANSOPRAZOLE [Suspect]
     Active Substance: LANSOPRAZOLE
     Route: 065
  204. LANSOPRAZOLE [Suspect]
     Active Substance: LANSOPRAZOLE
     Dosage: 30 MG,UNK (DAILY DOSE: 30 MILLIGRAM(S))
     Route: 065
     Dates: start: 2006
  205. LANSOPRAZOLE [Suspect]
     Active Substance: LANSOPRAZOLE
     Route: 065
  206. MUPIROCIN [Suspect]
     Active Substance: MUPIROCIN
     Indication: Ill-defined disorder
     Route: 065
     Dates: start: 2006
  207. MUPIROCIN [Suspect]
     Active Substance: MUPIROCIN
     Route: 065
     Dates: start: 2006
  208. MUPIROCIN [Suspect]
     Active Substance: MUPIROCIN
     Dosage: 10ML/50% 8MMOLS/50MLS
     Route: 065
     Dates: start: 2006
  209. MUPIROCIN [Suspect]
     Active Substance: MUPIROCIN
     Route: 065
  210. MUPIROCIN [Suspect]
     Active Substance: MUPIROCIN
     Dosage: 50 UNITS/50ML
     Route: 042
  211. CALCIUM CHLORIDE [Suspect]
     Active Substance: CALCIUM CHLORIDE
     Indication: Pneumonia
     Dosage: 120 UNK, (10 ML, UNK (DAILY DOSE: 10 MILLILITRE(S))
     Route: 065
  212. CALCIUM CHLORIDE [Suspect]
     Active Substance: CALCIUM CHLORIDE
     Dosage: 120 DF, (10 MILLILITER)
     Route: 042
  213. CALCIUM CHLORIDE [Suspect]
     Active Substance: CALCIUM CHLORIDE
     Route: 042
  214. SODIUM BICARBONATE [Suspect]
     Active Substance: SODIUM BICARBONATE
     Indication: Ill-defined disorder
     Route: 042
  215. SODIUM BICARBONATE [Suspect]
     Active Substance: SODIUM BICARBONATE
     Route: 042
  216. MAGNESIUM HYDROXIDE [Suspect]
     Active Substance: MAGNESIUM HYDROXIDE
     Indication: Pneumonia
     Dosage: 10ML/50% 8MMOLS/50MLS
     Route: 061
  217. INSULIN HUMAN [Suspect]
     Active Substance: INSULIN HUMAN
     Indication: Pneumonia
     Route: 042
  218. POTASSIUM IODIDE [Suspect]
     Active Substance: POTASSIUM IODIDE
     Indication: Pneumonia
     Route: 065
  219. HYDROCORTISONE [Suspect]
     Active Substance: HYDROCORTISONE
     Indication: Pneumonia
     Route: 065
  220. HYDROCORTISONE [Suspect]
     Active Substance: HYDROCORTISONE
     Indication: Ill-defined disorder
     Route: 042
  221. HYDROCORTISONE [Suspect]
     Active Substance: HYDROCORTISONE
     Route: 065
  222. HYDROCORTISONE [Suspect]
     Active Substance: HYDROCORTISONE
     Route: 042
  223. HYDROCORTISONE [Suspect]
     Active Substance: HYDROCORTISONE
     Dosage: (FREQUENCY OF PRODUCT : 1S)
     Route: 065
  224. HYDROCORTISONE [Suspect]
     Active Substance: HYDROCORTISONE
     Route: 042
  225. HYDROCORTISONE [Suspect]
     Active Substance: HYDROCORTISONE
     Route: 042
  226. POTASSIUM PHOSPHATE, MONOBASIC [Suspect]
     Active Substance: POTASSIUM PHOSPHATE, MONOBASIC
     Indication: Pneumonia
     Route: 065
  227. INSULIN HUMAN [Suspect]
     Active Substance: INSULIN HUMAN
     Indication: Pneumonia
     Route: 065
  228. INSULIN HUMAN [Suspect]
     Active Substance: INSULIN HUMAN
     Dosage: 50 ML, (50 UNITS/50ML)
     Route: 042
  229. INSULIN HUMAN [Suspect]
     Active Substance: INSULIN HUMAN
     Route: 061
  230. INSULIN HUMAN [Suspect]
     Active Substance: INSULIN HUMAN
     Route: 042
  231. CITRIC ACID [Suspect]
     Active Substance: CITRIC ACID MONOHYDRATE
     Indication: Pneumonia
     Route: 065
  232. DALTEPARIN SODIUM [Suspect]
     Active Substance: DALTEPARIN SODIUM
     Indication: Ill-defined disorder
     Route: 058
  233. DALTEPARIN SODIUM [Suspect]
     Active Substance: DALTEPARIN SODIUM
     Route: 065
  234. DALTEPARIN SODIUM [Suspect]
     Active Substance: DALTEPARIN SODIUM
     Route: 058
     Dates: start: 2006
  235. DALTEPARIN SODIUM [Suspect]
     Active Substance: DALTEPARIN SODIUM
     Dosage: 2500 IU/DL
     Route: 058
  236. RIBOFLAVIN [Suspect]
     Active Substance: RIBOFLAVIN
     Indication: Ill-defined disorder
     Route: 065
  237. CITRIC ACID MONOHYDRATE\SODIUM BICARBONATE\TARTARIC ACID [Suspect]
     Active Substance: CITRIC ACID MONOHYDRATE\SODIUM BICARBONATE\TARTARIC ACID
     Indication: Pneumonia
     Route: 065
  238. CITRIC ACID MONOHYDRATE\SODIUM BICARBONATE\TARTARIC ACID [Suspect]
     Active Substance: CITRIC ACID MONOHYDRATE\SODIUM BICARBONATE\TARTARIC ACID
     Route: 048
     Dates: start: 2006
  239. THIAMINE MONONITRATE [Suspect]
     Active Substance: THIAMINE MONONITRATE
     Indication: Ill-defined disorder
     Route: 048
     Dates: start: 2006
  240. VITAMIN K1 [Suspect]
     Active Substance: PHYTONADIONE
     Indication: Pneumonia
     Route: 065
  241. VITAMIN K1 [Suspect]
     Active Substance: PHYTONADIONE
     Indication: Ill-defined disorder
  242. AMOXICILLIN\CLAVULANATE POTASSIUM [Concomitant]
     Active Substance: AMOXICILLIN\CLAVULANATE POTASSIUM
     Indication: Ill-defined disorder
     Route: 065
     Dates: start: 20060913
  243. AMOXICILLIN\CLAVULANATE POTASSIUM [Concomitant]
     Active Substance: AMOXICILLIN\CLAVULANATE POTASSIUM
     Route: 048
  244. AMOXICILLIN\CLAVULANATE POTASSIUM [Concomitant]
     Active Substance: AMOXICILLIN\CLAVULANATE POTASSIUM
     Route: 065
     Dates: start: 20060913
  245. ATROVENT [Concomitant]
     Active Substance: IPRATROPIUM BROMIDE
     Indication: Ill-defined disorder
     Route: 065
  246. ATROVENT [Concomitant]
     Active Substance: IPRATROPIUM BROMIDE
     Dosage: PRN (AS REQUIRED)
     Route: 065
  247. ATROVENT [Concomitant]
     Active Substance: IPRATROPIUM BROMIDE
     Dosage: PRN (AS REQUIRED)
     Route: 065
  248. ATROVENT [Concomitant]
     Active Substance: IPRATROPIUM BROMIDE
     Dosage: PRN (AS REQUIRED)
     Route: 048
  249. ATROVENT [Concomitant]
     Active Substance: IPRATROPIUM BROMIDE
     Route: 048
  250. ATROVENT [Concomitant]
     Active Substance: IPRATROPIUM BROMIDE
     Dosage: AS NECESSARY (NEBULISER)
     Route: 048
  251. ATROVENT [Concomitant]
     Active Substance: IPRATROPIUM BROMIDE
     Route: 048
  252. ATROVENT [Concomitant]
     Active Substance: IPRATROPIUM BROMIDE
     Dosage: AS REQUIRED
     Route: 048
  253. ATROVENT [Concomitant]
     Active Substance: IPRATROPIUM BROMIDE
     Route: 048
  254. ATROVENT [Concomitant]
     Active Substance: IPRATROPIUM BROMIDE
     Route: 048
  255. ATROVENT [Concomitant]
     Active Substance: IPRATROPIUM BROMIDE
     Dosage: PRN
     Route: 065
  256. MIDODRINE [Concomitant]
     Active Substance: MIDODRINE
     Indication: Ill-defined disorder
     Route: 048
  257. MIDODRINE [Concomitant]
     Active Substance: MIDODRINE
     Route: 065
  258. ZOPICLONE [Concomitant]
     Active Substance: ZOPICLONE
     Indication: Ill-defined disorder
     Route: 048
  259. ZOPICLONE [Concomitant]
     Active Substance: ZOPICLONE
     Route: 048
  260. PANTOPRAZOLE [Concomitant]
     Active Substance: PANTOPRAZOLE
     Indication: Ill-defined disorder
     Dosage: 40 MILLIGRAM
     Route: 042
  261. PANTOPRAZOLE [Concomitant]
     Active Substance: PANTOPRAZOLE
     Dosage: 40 MILLIGRAM
     Route: 042
  262. AMOXICILLIN\CLAVULANATE POTASSIUM [Concomitant]
     Active Substance: AMOXICILLIN\CLAVULANATE POTASSIUM
     Indication: Product used for unknown indication
     Dosage: 375 MILLIGRAM, Q8H (DAILY DOSE TEXT: 375 MG 3/1 DAYS), TID
     Route: 065
     Dates: start: 20060913
  263. AMOXICILLIN\CLAVULANATE POTASSIUM [Concomitant]
     Active Substance: AMOXICILLIN\CLAVULANATE POTASSIUM
     Route: 065
  264. AMOXICILLIN\CLAVULANATE POTASSIUM [Concomitant]
     Active Substance: AMOXICILLIN\CLAVULANATE POTASSIUM
     Route: 065
     Dates: start: 20060913
  265. AMOXICILLIN\CLAVULANATE POTASSIUM [Concomitant]
     Active Substance: AMOXICILLIN\CLAVULANATE POTASSIUM
     Route: 065
     Dates: start: 20060913
  266. AMOXICILLIN\CLAVULANATE POTASSIUM [Concomitant]
     Active Substance: AMOXICILLIN\CLAVULANATE POTASSIUM
     Route: 065
     Dates: start: 20060913
  267. VANCOMYCIN [Concomitant]
     Active Substance: VANCOMYCIN
     Indication: Ill-defined disorder
     Dosage: 1 G, QD
     Route: 042
  268. VANCOMYCIN [Concomitant]
     Active Substance: VANCOMYCIN
     Dosage: DAILY DOSE TEXT: 1G 1/1 DAYS
     Route: 042
  269. PIPERACILLIN SODIUM\TAZOBACTAM SODIUM [Concomitant]
     Active Substance: PIPERACILLIN SODIUM\TAZOBACTAM SODIUM
     Indication: Ill-defined disorder
     Route: 042
     Dates: start: 20061009
  270. PIPERACILLIN SODIUM\TAZOBACTAM SODIUM [Concomitant]
     Active Substance: PIPERACILLIN SODIUM\TAZOBACTAM SODIUM
     Route: 042
     Dates: start: 20061004, end: 20061009
  271. PIPERACILLIN SODIUM\TAZOBACTAM SODIUM [Concomitant]
     Active Substance: PIPERACILLIN SODIUM\TAZOBACTAM SODIUM
     Dosage: 4.5 MG, QID
     Route: 042
     Dates: start: 2006
  272. PIPERACILLIN SODIUM\TAZOBACTAM SODIUM [Concomitant]
     Active Substance: PIPERACILLIN SODIUM\TAZOBACTAM SODIUM
     Route: 042
  273. PIPERACILLIN SODIUM\TAZOBACTAM SODIUM [Concomitant]
     Active Substance: PIPERACILLIN SODIUM\TAZOBACTAM SODIUM
     Route: 042
  274. PIPERACILLIN SODIUM\TAZOBACTAM SODIUM [Concomitant]
     Active Substance: PIPERACILLIN SODIUM\TAZOBACTAM SODIUM
     Dosage: 4.5 G (INCREASED TO 4 TIMES DAILY)
     Route: 042
     Dates: start: 20061004, end: 20061009
  275. PIPERACILLIN SODIUM\TAZOBACTAM SODIUM [Concomitant]
     Active Substance: PIPERACILLIN SODIUM\TAZOBACTAM SODIUM
     Route: 042
     Dates: start: 20061004, end: 20061009
  276. PIPERACILLIN SODIUM\TAZOBACTAM SODIUM [Concomitant]
     Active Substance: PIPERACILLIN SODIUM\TAZOBACTAM SODIUM
     Route: 042
     Dates: start: 20061004, end: 20061009
  277. PIPERACILLIN SODIUM\TAZOBACTAM SODIUM [Concomitant]
     Active Substance: PIPERACILLIN SODIUM\TAZOBACTAM SODIUM
     Route: 042
  278. PIPERACILLIN SODIUM\TAZOBACTAM SODIUM [Concomitant]
     Active Substance: PIPERACILLIN SODIUM\TAZOBACTAM SODIUM
     Route: 042
  279. PIPERACILLIN SODIUM\TAZOBACTAM SODIUM [Concomitant]
     Active Substance: PIPERACILLIN SODIUM\TAZOBACTAM SODIUM
     Route: 065
  280. AMOXICILLIN [Concomitant]
     Active Substance: AMOXICILLIN
     Indication: Ill-defined disorder
     Dosage: 250 MILLIGRAM
     Route: 048
     Dates: start: 20060913
  281. AMOXICILLIN [Concomitant]
     Active Substance: AMOXICILLIN
     Route: 065
  282. CIPROFLOXACIN [Concomitant]
     Active Substance: CIPROFLOXACIN
     Indication: Ill-defined disorder
     Dosage: 400 MILLIGRAM, QD
     Route: 042
  283. CIPROFLOXACIN [Concomitant]
     Active Substance: CIPROFLOXACIN
     Dosage: 400 MILLIGRAM, QD
     Route: 042
  284. CIPROFLOXACIN [Concomitant]
     Active Substance: CIPROFLOXACIN
     Dosage: 400 MG, QD
     Route: 042
  285. CIPROFLOXACIN [Concomitant]
     Active Substance: CIPROFLOXACIN
     Dosage: 400 MG, QD
     Route: 042
  286. ASPIRIN [Concomitant]
     Active Substance: ASPIRIN
     Indication: Ill-defined disorder
     Route: 048
  287. ASPIRIN [Concomitant]
     Active Substance: ASPIRIN
     Route: 065
  288. ERYTHROMYCIN [Concomitant]
     Active Substance: ERYTHROMYCIN
     Indication: Ill-defined disorder
     Dosage: 250 MILLIGRAM
     Route: 065
  289. ERYTHROMYCIN [Concomitant]
     Active Substance: ERYTHROMYCIN
     Dosage: 250 MILLIGRAM
     Route: 065
  290. ERYTHROMYCIN [Concomitant]
     Active Substance: ERYTHROMYCIN
     Dosage: 250 MILLIGRAM
     Route: 065
  291. ERYTHROMYCIN [Concomitant]
     Active Substance: ERYTHROMYCIN
     Route: 065
  292. METOCLOPRAMIDE HYDROCHLORIDE [Concomitant]
     Active Substance: METOCLOPRAMIDE HYDROCHLORIDE
     Indication: Ill-defined disorder
     Route: 042
  293. METOCLOPRAMIDE [Concomitant]
     Active Substance: METOCLOPRAMIDE
     Indication: Product used for unknown indication
     Route: 042
  294. ASPIRIN KHYDROCORTISONEOMPLEX [Concomitant]
     Indication: Ill-defined disorder
  295. ASPIRIN\PSEUDOEPHEDRINE HYDROCHLORIDE [Concomitant]
     Active Substance: ASPIRIN\PSEUDOEPHEDRINE HYDROCHLORIDE
     Indication: Ill-defined disorder
  296. TRICLOSAN [Concomitant]
     Active Substance: TRICLOSAN
     Indication: Ill-defined disorder
     Route: 042
  297. ERITHRIN [Concomitant]
     Indication: Product used for unknown indication
     Route: 065
  298. ERITHRIN [Concomitant]
     Dosage: NASOGASTRIC ROUTE
     Route: 050
  299. ERITHRIN [Concomitant]
     Dosage: NASOGASTRIC ROUTE
     Route: 050
  300. IPRATROPIUM BROMIDE [Concomitant]
     Active Substance: IPRATROPIUM BROMIDE
     Indication: Product used for unknown indication
     Route: 065
  301. CIPROFLOXACIN HYDROCHLORIDE [Concomitant]
     Active Substance: CIPROFLOXACIN HYDROCHLORIDE
     Indication: Ill-defined disorder
     Route: 042
  302. CIPROFLOXACIN HYDROCHLORIDE [Concomitant]
     Active Substance: CIPROFLOXACIN HYDROCHLORIDE
     Route: 042
     Dates: start: 2006

REACTIONS (5)
  - Toxic epidermal necrolysis [Unknown]
  - Drug hypersensitivity [Unknown]
  - Product use in unapproved indication [Unknown]
  - Off label use [Unknown]
  - Off label use [Unknown]

NARRATIVE: CASE EVENT DATE: 20060101
